FAERS Safety Report 18379744 (Version 1)
Quarter: 2020Q4

REPORT INFORMATION
  Report Type: Spontaneous
  Country: ES (occurrence: ES)
  Receive Date: 20201014
  Receipt Date: 20201014
  Transmission Date: 20210114
  Serious: Yes (Death, Other)
  Sender: FDA-Public Use
  Company Number: ES-AMGEN-ESPSP2020163510

PATIENT
  Age: 42 Year
  Sex: Male

DRUGS (1)
  1. PANITUMUMAB [Suspect]
     Active Substance: PANITUMUMAB
     Indication: ACINAR CELL CARCINOMA OF PANCREAS
     Dosage: UNK
     Route: 065

REACTIONS (7)
  - Off label use [Unknown]
  - Delirium [Unknown]
  - Palliative care [Unknown]
  - Hypercalcaemia [Unknown]
  - Abdominal pain [Unknown]
  - Asthenia [Unknown]
  - Acinar cell carcinoma of pancreas [Fatal]
